FAERS Safety Report 9032003 (Version 1)
Quarter: 2013Q1

REPORT INFORMATION
  Report Type: Spontaneous
  Country: NO (occurrence: NO)
  Receive Date: 20130125
  Receipt Date: 20130125
  Transmission Date: 20140127
  Serious: Yes (Death, Hospitalization)
  Sender: FDA-Public Use
  Company Number: NO-SANOFI-AVENTIS-2013SA003602

PATIENT
  Age: 69 Year
  Sex: Male

DRUGS (1)
  1. JEVTANA [Suspect]
     Indication: PROSTATE CANCER METASTATIC
     Dosage: 48 MG (1.95 MG/M2, 25 MG/M2)
     Route: 042
     Dates: start: 20130108, end: 20130108

REACTIONS (2)
  - Death [Fatal]
  - Pyrexia [Unknown]
